FAERS Safety Report 19156613 (Version 1)
Quarter: 2021Q2

REPORT INFORMATION
  Report Type: Report from Study
  Country: US (occurrence: US)
  Receive Date: 20210419
  Receipt Date: 20210419
  Transmission Date: 20210717
  Serious: Yes (Other)
  Sender: FDA-Public Use
  Company Number: US-BIOGEN-2020BI00959856

PATIENT
  Age: 59 Year
  Sex: Female

DRUGS (3)
  1. VUMERITY [Suspect]
     Active Substance: DIROXIMEL FUMARATE
     Route: 048
     Dates: start: 202011, end: 20201231
  2. VUMERITY [Suspect]
     Active Substance: DIROXIMEL FUMARATE
     Indication: MULTIPLE SCLEROSIS
     Route: 048
  3. VUMERITY [Suspect]
     Active Substance: DIROXIMEL FUMARATE
     Route: 048
     Dates: start: 20210101

REACTIONS (8)
  - Stevens-Johnson syndrome [Recovered/Resolved]
  - Chapped lips [Not Recovered/Not Resolved]
  - Underdose [Unknown]
  - Skin exfoliation [Recovered/Resolved]
  - Dry skin [Unknown]
  - Pruritus [Unknown]
  - Flushing [Recovered/Resolved]
  - Urticaria [Unknown]

NARRATIVE: CASE EVENT DATE: 20210101
